FAERS Safety Report 5413221-6 (Version None)
Quarter: 2007Q3

REPORT INFORMATION
  Report Type: 
  Country: None (occurrence: None)
  Receive Date: 20070814
  Receipt Date: 20070807
  Transmission Date: 20080115
  Serious: Yes (Other)
  Sender: FDA-Public Use
  Company Number: PHBS2007KZ13142

PATIENT
  Age: 66 Year
  Sex: Female

DRUGS (3)
  1. MIACALCIN [Suspect]
     Indication: OSTEOPOROSIS POSTMENOPAUSAL
     Dosage: 100 U, QD
     Route: 030
     Dates: start: 20070701
  2. MIACALCIN [Suspect]
     Dosage: 100 U, QOD
     Route: 030
     Dates: end: 20070801
  3. CALCIUM CHLORIDE [Concomitant]

REACTIONS (3)
  - ANGINA PECTORIS [None]
  - INSOMNIA [None]
  - PALPITATIONS [None]
